FAERS Safety Report 23386188 (Version 4)
Quarter: 2025Q1

REPORT INFORMATION
  Report Type: Spontaneous
  Country: US (occurrence: US)
  Receive Date: 20240110
  Receipt Date: 20250226
  Transmission Date: 20250409
  Serious: Yes (Other)
  Sender: VIIV
  Company Number: US-VIIV HEALTHCARE LIMITED-US2024001116

PATIENT

DRUGS (3)
  1. CABENUVA [Suspect]
     Active Substance: CABOTEGRAVIR\RILPIVIRINE
     Indication: HIV infection
     Dosage: UNK UNK, Q2M, SINGLE-DOSE VIAL OF 600-MG/900-MG
     Dates: start: 2022
  2. CABENUVA [Suspect]
     Active Substance: CABOTEGRAVIR\RILPIVIRINE
  3. CABENUVA [Suspect]
     Active Substance: CABOTEGRAVIR\RILPIVIRINE

REACTIONS (9)
  - Neuropathy peripheral [Not Recovered/Not Resolved]
  - Sepsis [Unknown]
  - Varicella [Unknown]
  - Herpes zoster [Unknown]
  - Discomfort [Unknown]
  - Mental disorder [Unknown]
  - Scoliosis [Unknown]
  - Tremor [Unknown]
  - Blood HIV RNA increased [Unknown]
